FAERS Safety Report 7073310-X (Version None)
Quarter: 2010Q4

REPORT INFORMATION
  Report Type: 
  Country: None (occurrence: None)
  Receive Date: 20101029
  Receipt Date: 20100527
  Transmission Date: 20110411
  Serious: No
  Sender: FDA-Public Use
  Company Number: A0861690A

PATIENT
  Age: 65 Year
  Sex: Female

DRUGS (5)
  1. ADVAIR DISKUS 100/50 [Suspect]
     Indication: ASTHMA
     Route: 055
     Dates: start: 20100506
  2. SPIRIVA [Concomitant]
  3. LORA TAB [Concomitant]
  4. SOMA [Concomitant]
  5. XANAX [Concomitant]

REACTIONS (3)
  - DYSPHONIA [None]
  - LARYNGITIS [None]
  - OROPHARYNGEAL PAIN [None]
